FAERS Safety Report 14577533 (Version 1)
Quarter: 2018Q1

REPORT INFORMATION
  Report Type: Report from Study
  Country: CA (occurrence: CA)
  Receive Date: 20180227
  Receipt Date: 20180227
  Transmission Date: 20180509
  Serious: Yes (Hospitalization)
  Sender: FDA-Public Use
  Company Number: CA-JNJFOC-20171223117

PATIENT
  Age: 23 Year
  Sex: Male

DRUGS (1)
  1. STELARA [Suspect]
     Active Substance: USTEKINUMAB
     Indication: CROHN^S DISEASE
     Dosage: STRENGTH = 90 MG??ALSO REPORTED AS ONCE EVERY 28 DAYS
     Route: 058
     Dates: start: 20140922

REACTIONS (4)
  - Diarrhoea [Not Recovered/Not Resolved]
  - Blood iron decreased [Unknown]
  - Abscess [Unknown]
  - Fistula [Unknown]

NARRATIVE: CASE EVENT DATE: 20171214
